FAERS Safety Report 10229803 (Version 3)
Quarter: 2014Q3

REPORT INFORMATION
  Report Type: Report from Study
  Country: US (occurrence: US)
  Receive Date: 20140611
  Receipt Date: 20140702
  Transmission Date: 20150326
  Serious: Yes (Life-Threatening)
  Sender: FDA-Public Use
  Company Number: US-009507513-1406USA004651

PATIENT
  Age: 44 Year
  Sex: Female
  Weight: 59.5 kg

DRUGS (6)
  1. OMEPRAZOLE. [Concomitant]
     Active Substance: OMEPRAZOLE
     Route: 048
  2. VORINOSTAT [Suspect]
     Active Substance: VORINOSTAT
     Indication: ACUTE MYELOID LEUKAEMIA
     Dosage: 500 MG, TID, ON DAYS 1-3, CYCLE 1 (INDUCTION AND RE-INDUCTION (CYCLE=28 DAYS)
     Route: 048
     Dates: start: 20140528, end: 20140530
  3. IDARUBICIN [Suspect]
     Active Substance: IDARUBICIN
     Indication: ACUTE MYELOID LEUKAEMIA
     Dosage: 12 MG/M2/DAY, OVER 15 MIN ON DAYS 4-6, CYCLE 1 (INDUCTION AND RE-INDUCTION (CYCLE=28 DAYS)
     Route: 042
     Dates: start: 20140531, end: 20140602
  4. CYTARABINE. [Suspect]
     Active Substance: CYTARABINE
     Indication: ACUTE MYELOID LEUKAEMIA
     Dosage: 1500 MG/M2/DAY, ON DAYS 4-7, CYCLE 1, (INDUCTION AND RE-INDUCTION (CYCLE=28 DAYS)
     Route: 042
     Dates: start: 20140531, end: 20140602
  5. EXCEDRIN (ACETAMINOPHEN (+) CAFFEINE) [Concomitant]
  6. SEPTRA DS [Concomitant]
     Active Substance: SULFAMETHOXAZOLE\TRIMETHOPRIM

REACTIONS (1)
  - Presyncope [Recovered/Resolved]

NARRATIVE: CASE EVENT DATE: 20140602
